FAERS Safety Report 21190445 (Version 3)
Quarter: 2022Q3

REPORT INFORMATION
  Report Type: Spontaneous
  Country: US (occurrence: US)
  Receive Date: 20220809
  Receipt Date: 20220913
  Transmission Date: 20221026
  Serious: Yes (Other)
  Sender: FDA-Public Use
  Company Number: US-SUNOVION-2022SUN002338

PATIENT
  Sex: Male

DRUGS (4)
  1. APTIOM [Suspect]
     Active Substance: ESLICARBAZEPINE ACETATE
     Dosage: 600 MG
     Route: 048
     Dates: start: 202110
  2. APTIOM [Suspect]
     Active Substance: ESLICARBAZEPINE ACETATE
     Dosage: 800 MG
     Route: 048
  3. APTIOM [Suspect]
     Active Substance: ESLICARBAZEPINE ACETATE
     Dosage: 1000 MG (800 MG AND 200 MG)
     Route: 048
  4. KEPPRA XR [Concomitant]
     Active Substance: LEVETIRACETAM
     Dosage: 500 MG
     Route: 065

REACTIONS (2)
  - Seizure [Unknown]
  - Intracranial mass [Unknown]
